FAERS Safety Report 8313921-4 (Version None)
Quarter: 2012Q2

REPORT INFORMATION
  Report Type: 
  Country: None (occurrence: None)
  Receive Date: 20120426
  Receipt Date: 20120426
  Transmission Date: 20120825
  Serious: Yes (Hospitalization)
  Sender: FDA-Public Use
  Company Number: None

PATIENT
  Age: 64 Year
  Sex: Male
  Weight: 77.3 kg

DRUGS (2)
  1. RITUXAN [Concomitant]
  2. BENDAMUSTINE [Suspect]

REACTIONS (1)
  - DRUG ERUPTION [None]
